FAERS Safety Report 10159345 (Version 2)
Quarter: 2014Q2

REPORT INFORMATION
  Report Type: Spontaneous
  Country: BR (occurrence: BR)
  Receive Date: 20140508
  Receipt Date: 20140602
  Transmission Date: 20141212
  Serious: No
  Sender: FDA-Public Use
  Company Number: BR-SA-2014SA054932

PATIENT
  Age: 8 Year
  Sex: Female
  Weight: 27 kg

DRUGS (4)
  1. LANTUS [Suspect]
     Indication: TYPE 1 DIABETES MELLITUS
     Route: 058
     Dates: start: 20140214
  2. LANTUS [Suspect]
     Indication: TYPE 1 DIABETES MELLITUS
     Route: 058
  3. CLIKSTAR [Concomitant]
     Indication: DEVICE THERAPY
  4. ANTIBIOTICS [Concomitant]
     Dates: start: 201401, end: 201404

REACTIONS (6)
  - Throat irritation [Unknown]
  - Hyperglycaemia [Not Recovered/Not Resolved]
  - Malaise [Not Recovered/Not Resolved]
  - Eye irritation [Not Recovered/Not Resolved]
  - Headache [Not Recovered/Not Resolved]
  - Hypoglycaemia [Unknown]
